FAERS Safety Report 5936367-2 (Version None)
Quarter: 2008Q4

REPORT INFORMATION
  Report Type: 
  Country: None (occurrence: None)
  Receive Date: 20081030
  Receipt Date: 20081021
  Transmission Date: 20090506
  Serious: Yes (Other)
  Sender: FDA-Public Use
  Company Number: GB-ASTRAZENECA-2008GB01893

PATIENT
  Age: 51 Year
  Sex: Male

DRUGS (1)
  1. ROSUVASTATIN [Suspect]
     Indication: LIPIDS ABNORMAL
     Route: 048
     Dates: start: 20060101

REACTIONS (1)
  - ECZEMA [None]
